FAERS Safety Report 19456115 (Version 1)
Quarter: 2021Q2

REPORT INFORMATION
  Report Type: Spontaneous
  Country: FR (occurrence: FR)
  Receive Date: 20210624
  Receipt Date: 20210624
  Transmission Date: 20210717
  Serious: Yes (Other)
  Sender: FDA-Public Use
  Company Number: FR-SA-2021SA204785

PATIENT
  Age: 82 Year
  Sex: Female
  Weight: 108 kg

DRUGS (11)
  1. PRIMPERAN [Concomitant]
     Active Substance: METOCLOPRAMIDE HYDROCHLORIDE
  2. VENLAFAXINE HYDROCHLORIDE. [Concomitant]
     Active Substance: VENLAFAXINE HYDROCHLORIDE
  3. LOVENOX [Concomitant]
     Active Substance: ENOXAPARIN SODIUM
  4. DOLIPRANE [Concomitant]
     Active Substance: ACETAMINOPHEN
  5. SULFAMETHOXAZOLE/TRIMETHOPRIM [Suspect]
     Active Substance: SULFAMETHOXAZOLE\TRIMETHOPRIM
     Dosage: 4 DF, QD
     Route: 048
     Dates: start: 20210514, end: 20210526
  6. CETIRIZINE [Concomitant]
     Active Substance: CETIRIZINE HYDROCHLORIDE
  7. BISOPROLOL FUMARATE. [Concomitant]
     Active Substance: BISOPROLOL FUMARATE
  8. PREDNISOLONE. [Concomitant]
     Active Substance: PREDNISOLONE
  9. ALDACTONE [Concomitant]
     Active Substance: SPIRONOLACTONE
  10. RIFAMPICIN [Suspect]
     Active Substance: RIFAMPIN
     Dosage: 4 DF, QD
     Route: 048
     Dates: start: 20210514, end: 20210526
  11. OXYCODONE [Concomitant]
     Active Substance: OXYCODONE

REACTIONS (2)
  - Hepatic cytolysis [Recovered/Resolved]
  - Encephalopathy [Recovering/Resolving]

NARRATIVE: CASE EVENT DATE: 20210521
